FAERS Safety Report 6756955-3 (Version None)
Quarter: 2010Q2

REPORT INFORMATION
  Report Type: 
  Country: None (occurrence: None)
  Receive Date: 20100603
  Receipt Date: 20100603
  Transmission Date: 20101027
  Serious: Yes (Hospitalization)
  Sender: FDA-Public Use
  Company Number: None

PATIENT
  Sex: Male
  Weight: 103 kg

DRUGS (8)
  1. DAUNORUBICIN HCL [Suspect]
     Dosage: 240 MG
     Dates: end: 20100528
  2. METHOTREXATE [Suspect]
     Dosage: 15 MG
     Dates: end: 20100514
  3. PEG-L-ASPARAGINASE (PAGASPARGASE,ONCOSPAR) [Suspect]
     Dosage: 6050 MG
     Dates: end: 20100510
  4. PREDNISONE [Suspect]
     Dosage: 3777 MG
     Dates: end: 20100602
  5. VINCRISTINE [Suspect]
     Dosage: 8 MG
     Dates: end: 20100528
  6. CYTARABINE [Suspect]
     Dosage: 70 MG
     Dates: end: 20100504
  7. BACTRIM [Concomitant]
  8. PREVACID [Concomitant]

REACTIONS (7)
  - BLOOD CHOLESTEROL INCREASED [None]
  - BLOOD FIBRINOGEN ABNORMAL [None]
  - GALLBLADDER DISORDER [None]
  - HEPATIC STEATOSIS [None]
  - HEPATOMEGALY [None]
  - INTERNATIONAL NORMALISED RATIO INCREASED [None]
  - OCULAR ICTERUS [None]
